FAERS Safety Report 9238352 (Version 1)
Quarter: 2013Q1

REPORT INFORMATION
  Report Type: Spontaneous
  Country: US (occurrence: None)
  Receive Date: 20121106
  Receipt Date: 20121106
  Transmission Date: 20140127
  Serious: No
  Sender: FDA-Public Use
  Company Number: 1000037442

PATIENT
  Age: 85 Year
  Sex: Female

DRUGS (4)
  1. DALIRESP (ROFLUMILAST) (500 MICROGRAM, TABLETS) [Suspect]
     Indication: BRONCHITIS CHRONIC
     Dosage: 500 MCG, 1 IN 1
     Dates: start: 2012, end: 201207
  2. DIOVAN [Concomitant]
  3. CALCIUM (CALCIUM) (CALCIUM) [Concomitant]
  4. VITAMIN D (VITAMIN D) (VITAMIN D) [Concomitant]

REACTIONS (2)
  - Diarrhoea [None]
  - Cough [None]
